FAERS Safety Report 24777437 (Version 1)
Quarter: 2024Q4

REPORT INFORMATION
  Report Type: Spontaneous
  Country: CA (occurrence: CA)
  Receive Date: 20241226
  Receipt Date: 20241226
  Transmission Date: 20250115
  Serious: Yes (Other)
  Sender: PFIZER
  Company Number: CA-PFIZER INC-202400329858

PATIENT
  Age: 9 Year
  Sex: Female

DRUGS (1)
  1. NGENLA [Suspect]
     Active Substance: SOMATROGON-GHLA
     Indication: Growth hormone deficiency
     Dosage: 22 MG,  WEEKLY
     Route: 058
     Dates: start: 20240329

REACTIONS (1)
  - Autism spectrum disorder [Unknown]

NARRATIVE: CASE EVENT DATE: 20240101
